FAERS Safety Report 6884918-6 (Version None)
Quarter: 2010Q3

REPORT INFORMATION
  Report Type: 
  Country: None (occurrence: None)
  Receive Date: 20100729
  Receipt Date: 20080130
  Transmission Date: 20110219
  Serious: Yes (Hospitalization, Other)
  Sender: FDA-Public Use
  Company Number: US-PFIZER INC-2007069645

PATIENT
  Sex: Male
  Weight: 102.1 kg

DRUGS (2)
  1. CELECOXIB [Suspect]
     Indication: PAIN
     Route: 048
     Dates: start: 19990226
  2. CELECOXIB [Suspect]
     Indication: RHEUMATOID ARTHRITIS

REACTIONS (1)
  - MYOCARDIAL INFARCTION [None]
